FAERS Safety Report 8480776-7 (Version None)
Quarter: 2012Q3

REPORT INFORMATION
  Report Type: 
  Country: None (occurrence: None)
  Receive Date: 20120702
  Receipt Date: 20120622
  Transmission Date: 20120928
  Serious: Yes (Hospitalization)
  Sender: FDA-Public Use
  Company Number: US-BAYER-2012-015882

PATIENT
  Age: 42 Year
  Sex: Female
  Weight: 50 kg

DRUGS (9)
  1. IBUPROFEN [Concomitant]
     Dosage: 600 MG, UNK
     Route: 048
     Dates: start: 20080422
  2. IMIPRAMINE HCL [Concomitant]
     Indication: DEPRESSION
     Dosage: 150 MG, UNK
     Route: 048
     Dates: start: 20040101
  3. VICODIN [Concomitant]
  4. ZOFRAN [Concomitant]
  5. KLONOPIN [Concomitant]
     Indication: DEPRESSION
     Dosage: 2 MG, UNK
     Route: 048
     Dates: start: 20040101
  6. YAZ [Suspect]
     Dosage: UNK
     Dates: start: 20070801, end: 20080601
  7. CYCLOBENZAPRINE [Concomitant]
     Dosage: 10 MG, UNK
     Route: 048
     Dates: start: 20080617
  8. NAPROSYN [Concomitant]
     Dosage: 500 MG, UNK
     Route: 048
     Dates: start: 20080617
  9. MORPHINE SULFATE [Concomitant]

REACTIONS (4)
  - PAIN [None]
  - DEPRESSION [None]
  - CHOLECYSTITIS CHRONIC [None]
  - GALLBLADDER DISORDER [None]
